FAERS Safety Report 8305691 (Version 2)
Quarter: 2012Q4

REPORT INFORMATION
  Report Type: 
  Country: US (occurrence: US)
  Receive Date: 20111221
  Receipt Date: 20120917
  Transmission Date: 20130627
  Serious: Yes (Hospitalization)
  Sender: FDA-Public Use
  Company Number: US-GLAXOSMITHKLINE-A0857760A

PATIENT
  Age: 55 Year
  Sex: Male
  Weight: 95.5 kg

DRUGS (1)
  1. AVANDIA [Suspect]
     Indication: TYPE 2 DIABETES MELLITUS
     Dosage: 4MG Unknown
     Route: 048
     Dates: start: 2001, end: 2007

REACTIONS (2)
  - Myocardial infarction [Recovered/Resolved]
  - Myocardial ischaemia [Unknown]
